FAERS Safety Report 6444104-0 (Version None)
Quarter: 2009Q4

REPORT INFORMATION
  Report Type: 
  Country: None (occurrence: None)
  Receive Date: 20091118
  Receipt Date: 20091105
  Transmission Date: 20100525
  Serious: Yes (Death, Life-Threatening, Hospitalization)
  Sender: FDA-Public Use
  Company Number: US-ELI_LILLY_AND_COMPANY-US200911001631

PATIENT
  Sex: Male
  Weight: 88.435 kg

DRUGS (19)
  1. PEMETREXED [Suspect]
     Indication: NON-SMALL CELL LUNG CANCER
     Dosage: 1075 MG/M2, OTHER
     Route: 042
     Dates: start: 20090721
  2. CISPLATIN [Suspect]
     Indication: NON-SMALL CELL LUNG CANCER
     Dosage: 161 MG/M2, OTHER
     Route: 042
     Dates: start: 20090721
  3. RADIATION [Suspect]
     Indication: NON-SMALL CELL LUNG CANCER
     Dosage: 200 D/F, UNK
     Dates: start: 20090721
  4. FOLIC ACID [Concomitant]
     Indication: VITAMIN SUPPLEMENTATION
     Dates: start: 20090706, end: 20091104
  5. VITAMIN B-12 [Concomitant]
     Indication: VITAMIN SUPPLEMENTATION
     Dates: start: 20090706, end: 20090907
  6. PREVACID [Concomitant]
     Dosage: 30 MG, DAILY (1/D)
     Dates: start: 20090818
  7. CARAFATE [Concomitant]
     Dosage: 1 G, 4/D
     Dates: start: 20090818
  8. DEXAMETHASONE [Concomitant]
     Dosage: 12 MG, UNK
     Route: 042
     Dates: start: 20090721
  9. PALONOSETRON [Concomitant]
     Dosage: 0.25 MG, UNK
     Route: 042
     Dates: start: 20090721
  10. PROCHLORPERAZINE [Concomitant]
     Dosage: 10 MG, AS NEEDED
     Route: 048
     Dates: start: 20090721
  11. ZOFRAN [Concomitant]
     Dosage: 8 MG, AS NEEDED
     Route: 048
     Dates: start: 20090728
  12. ALLOPURINOL [Concomitant]
     Indication: GOUT
     Route: 048
     Dates: start: 19990101
  13. GLYBURIDE [Concomitant]
     Indication: DIABETES MELLITUS
     Route: 048
     Dates: start: 19990101
  14. MIRTAZAPINE [Concomitant]
     Indication: DEPRESSION
     Route: 048
     Dates: start: 20090601
  15. NIACIN [Concomitant]
     Indication: BLOOD CHOLESTEROL
     Route: 048
     Dates: start: 19990101
  16. POTASSIUM CHLORIDE [Concomitant]
     Indication: ELECTROLYTE SUBSTITUTION THERAPY
     Route: 048
     Dates: start: 19990101
  17. SLOW-FE [Concomitant]
     Indication: SUPPLEMENTATION THERAPY
     Route: 048
     Dates: start: 20090901
  18. ASCORBIC ACID [Concomitant]
     Indication: SUPPLEMENTATION THERAPY
     Route: 048
     Dates: start: 20060101
  19. VIVARIN [Concomitant]
     Route: 048
     Dates: start: 20030101

REACTIONS (1)
  - MYOCARDIAL INFARCTION [None]
